FAERS Safety Report 16213444 (Version 2)
Quarter: 2019Q2

REPORT INFORMATION
  Report Type: Spontaneous
  Country: MT (occurrence: MT)
  Receive Date: 20190418
  Receipt Date: 20190517
  Transmission Date: 20190711
  Serious: Yes (Hospitalization)
  Sender: FDA-Public Use
  Company Number: MT-ELI_LILLY_AND_COMPANY-MT201904004881

PATIENT
  Age: 24 Year
  Sex: Male
  Weight: 120 kg

DRUGS (1)
  1. ZYPADHERA [Suspect]
     Active Substance: OLANZAPINE PAMOATE
     Indication: PRODUCT USED FOR UNKNOWN INDICATION
     Dosage: 405 MG, UNKNOWN
     Route: 030

REACTIONS (12)
  - Blood pressure increased [Unknown]
  - Post-injection delirium sedation syndrome [Unknown]
  - Movement disorder [Unknown]
  - Dizziness [Unknown]
  - Heart rate increased [Unknown]
  - Sedation [Unknown]
  - Restlessness [Unknown]
  - Discomfort [Unknown]
  - Moaning [Unknown]
  - Agitation [Unknown]
  - Depressed level of consciousness [Unknown]
  - Akathisia [Unknown]

NARRATIVE: CASE EVENT DATE: 20190408
